FAERS Safety Report 9484232 (Version 1)
Quarter: 2013Q3

REPORT INFORMATION
  Report Type: Spontaneous
  Country: CA (occurrence: CA)
  Receive Date: 20130828
  Receipt Date: 20130828
  Transmission Date: 20140515
  Serious: Yes (Other)
  Sender: FDA-Public Use
  Company Number: CA-AMGEN-KDL395098

PATIENT
  Age: 48 Year
  Sex: Female
  Weight: 83.1 kg

DRUGS (10)
  1. ENBREL [Suspect]
     Indication: RHEUMATOID ARTHRITIS
     Dosage: UNK UNK, QWK
     Route: 065
     Dates: start: 20060106
  2. CELECOXIB [Concomitant]
  3. PANADEINE CO [Concomitant]
  4. METHOCARBAMOL [Concomitant]
  5. IBUPROFEN [Concomitant]
  6. CYCLOBENZAPRINE [Concomitant]
  7. BUPROPION [Concomitant]
  8. HYDROXYCHLOROQUINE SULFATE [Concomitant]
  9. ACETYLSALICYLIC ACID [Concomitant]
     Dosage: 81 MG, QD
     Route: 048
  10. PROMETRIUM [Concomitant]
     Dosage: 300 MG, QD
     Route: 048

REACTIONS (6)
  - Anxiety [Unknown]
  - Tremor [Unknown]
  - Back injury [Unknown]
  - Muscular weakness [Unknown]
  - Dizziness [Unknown]
  - Sinusitis [Recovering/Resolving]
